FAERS Safety Report 7281195-1 (Version None)
Quarter: 2011Q1

REPORT INFORMATION
  Report Type: 
  Country: None (occurrence: None)
  Receive Date: 20110208
  Receipt Date: 20101024
  Transmission Date: 20110831
  Serious: No
  Sender: FDA-Public Use
  Company Number: US-BAYER-201022921BCC

PATIENT
  Sex: Female

DRUGS (6)
  1. ALEVE [Suspect]
     Indication: MYALGIA
  2. MULTI-VITAMIN [Concomitant]
  3. FISH OIL [Concomitant]
  4. GINGER [Concomitant]
  5. VITAMIN D [Concomitant]
     Dosage: UNK UNK, BID
  6. CALCIUM [CALCIUM] [Concomitant]

REACTIONS (1)
  - CONTUSION [None]
